FAERS Safety Report 24346644 (Version 1)
Quarter: 2024Q3

REPORT INFORMATION
  Report Type: Spontaneous
  Country: NL (occurrence: NL)
  Receive Date: 20240921
  Receipt Date: 20240921
  Transmission Date: 20241017
  Serious: Yes (Life-Threatening, Other)
  Sender: AUROBINDO
  Company Number: NL-LRB-01000777

PATIENT
  Age: 7 Year
  Sex: Female
  Weight: 20 kg

DRUGS (4)
  1. PREDNISOLONE [Suspect]
     Active Substance: PREDNISOLONE
     Indication: Pneumonia
     Dosage: 1 DOSAGE FORM, TWO TIMES A DAY (2X PER DAY)
     Route: 065
     Dates: start: 20231102
  2. SERETIDE [Suspect]
     Active Substance: FLUTICASONE PROPIONATE\SALMETEROL XINAFOATE
     Indication: Asthma
     Dosage: 1 DOSAGE FORM (1 OR 2X? PER DAY)
     Route: 065
     Dates: start: 20231223, end: 20240323
  3. ALBUTEROL [Concomitant]
     Active Substance: ALBUTEROL
     Indication: Product used for unknown indication
     Dosage: 100 ?G/DOSIS
     Route: 065
  4. POLYETHYLENE GLYCOLS [Concomitant]
     Active Substance: POLYETHYLENE GLYCOLS
     Indication: Product used for unknown indication
     Dosage: UNK
     Route: 065

REACTIONS (6)
  - Suicidal ideation [Recovering/Resolving]
  - Anxiety [Recovering/Resolving]
  - Aggression [Recovering/Resolving]
  - Psychotic behaviour [Recovering/Resolving]
  - Sensory overload [Recovering/Resolving]
  - Suspiciousness [Recovering/Resolving]
